FAERS Safety Report 7872933-5 (Version None)
Quarter: 2011Q4

REPORT INFORMATION
  Report Type: 
  Country: None (occurrence: None)
  Receive Date: 20111030
  Receipt Date: 20110420
  Transmission Date: 20120403
  Serious: No
  Sender: FDA-Public Use
  Company Number: US-AMGEN-USASP2011020765

PATIENT
  Age: 62 Year
  Sex: Female
  Weight: 75.737 kg

DRUGS (1)
  1. ENBREL [Suspect]
     Indication: RHEUMATOID ARTHRITIS
     Dosage: 50 MG, QWK
     Route: 058
     Dates: start: 19950612

REACTIONS (2)
  - INJECTION SITE PAIN [None]
  - INJECTION SITE ERYTHEMA [None]
